FAERS Safety Report 5828175-8 (Version None)
Quarter: 2008Q3

REPORT INFORMATION
  Report Type: 
  Country: None (occurrence: None)
  Receive Date: 20080729
  Receipt Date: 20080722
  Transmission Date: 20090109
  Serious: Yes (Life-Threatening, Hospitalization)
  Sender: FDA-Public Use
  Company Number: 163-20785-08061694

PATIENT
  Age: 77 Year
  Sex: Female

DRUGS (6)
  1. THALOMID [Suspect]
     Indication: MULTIPLE MYELOMA
     Dosage: 50 MG, QHS, ORAL
     Route: 048
     Dates: start: 20080421, end: 20080608
  2. DEXAMETHASONE TAB [Concomitant]
  3. CLARITHROMYCIN [Concomitant]
  4. HYDROCHLOROTHIAZIDE [Concomitant]
  5. QUINAPRIL HCL [Concomitant]
  6. FOSAMAX [Concomitant]

REACTIONS (2)
  - DIVERTICULAR PERFORATION [None]
  - DIVERTICULITIS [None]
